FAERS Safety Report 6267851-2 (Version None)
Quarter: 2009Q3

REPORT INFORMATION
  Report Type: 
  Country: None (occurrence: None)
  Receive Date: 20090709
  Receipt Date: 20090709
  Transmission Date: 20100115
  Serious: Yes (Other)
  Sender: FDA-Public Use
  Company Number: None

PATIENT
  Age: 52 Year
  Sex: Female
  Weight: 70.3075 kg

DRUGS (3)
  1. LISINOPRIL [Suspect]
     Indication: HYPERTENSION
     Dosage: X 1 PER DAY PO, BEST ESTIMATE 9 MO-1 YEAR --
     Route: 048
  2. ADDERALL XR 20 [Concomitant]
  3. SPIRONOLACTONE [Concomitant]

REACTIONS (5)
  - ASTHMA [None]
  - LIVEDO RETICULARIS [None]
  - MUSCLE SPASMS [None]
  - PAIN IN EXTREMITY [None]
  - PERIPHERAL COLDNESS [None]
